FAERS Safety Report 25390856 (Version 1)
Quarter: 2025Q2

REPORT INFORMATION
  Report Type: Spontaneous
  Country: US (occurrence: US)
  Receive Date: 20250603
  Receipt Date: 20250603
  Transmission Date: 20250717
  Serious: Yes (Death, Other)
  Sender: GLAXOSMITHKLINE
  Company Number: US-GSK-US2025068746

PATIENT

DRUGS (1)
  1. ZEJULA [Suspect]
     Active Substance: NIRAPARIB
     Indication: Endometrial cancer
     Dosage: 200 MG, QD

REACTIONS (4)
  - Death [Fatal]
  - Haemorrhage [Unknown]
  - Off label use [Unknown]
  - Therapeutic response unexpected [Unknown]
